FAERS Safety Report 11215102 (Version 1)
Quarter: 2015Q2

REPORT INFORMATION
  Report Type: Spontaneous
  Country: RO (occurrence: None)
  Receive Date: 20150622
  Receipt Date: 20150622
  Transmission Date: 20150821
  Serious: Yes (Death, Other)
  Sender: FDA-Public Use
  Company Number: RU-MDCO-14-00137

PATIENT
  Age: 74 Year
  Sex: Female
  Weight: 78 kg

DRUGS (8)
  1. CARDIOMAGNYL [Concomitant]
     Active Substance: ASPIRIN\MAGNESIUM HYDROXIDE
  2. FUROSEMIDE. [Concomitant]
     Active Substance: FUROSEMIDE
  3. OXYGEN. [Concomitant]
     Active Substance: OXYGEN
  4. ANGIOX [Suspect]
     Active Substance: BIVALIRUDIN
     Indication: PERCUTANEOUS CORONARY INTERVENTION
     Route: 042
     Dates: start: 20130906, end: 20130906
  5. CLOPIDOGREL [Concomitant]
     Active Substance: CLOPIDOGREL BISULFATE
  6. GLUCOSE [Concomitant]
     Active Substance: DEXTROSE
  7. DOBUTAMINE [Concomitant]
     Active Substance: DOBUTAMINE\DOBUTAMINE HYDROCHLORIDE
  8. POTASSIUM CHLORIDE. [Concomitant]
     Active Substance: POTASSIUM CHLORIDE

REACTIONS (8)
  - Cardiac tamponade [None]
  - Reperfusion injury [None]
  - Blood pressure decreased [None]
  - Myocardial necrosis [None]
  - Myocardial rupture [None]
  - Coronary artery thrombosis [None]
  - Cardiac failure acute [None]
  - Air embolism [None]

NARRATIVE: CASE EVENT DATE: 201309
